FAERS Safety Report 21463565 (Version 5)
Quarter: 2022Q4

REPORT INFORMATION
  Report Type: Report from Study
  Country: US (occurrence: US)
  Receive Date: 20221017
  Receipt Date: 20221110
  Transmission Date: 20230113
  Serious: Yes (Hospitalization, Other)
  Sender: FDA-Public Use
  Company Number: US-NOVARTISPH-NVSC2022US216813

PATIENT
  Age: 58 Year
  Sex: Female

DRUGS (28)
  1. TRAMETINIB [Suspect]
     Active Substance: TRAMETINIB
     Indication: Colorectal cancer metastatic
     Dosage: 1.5 MG
     Route: 042
     Dates: start: 20220601, end: 20220829
  2. NIVOLUMAB [Suspect]
     Active Substance: NIVOLUMAB
     Indication: Colorectal cancer metastatic
     Dosage: 431.4 MG
     Route: 042
     Dates: start: 20220601, end: 20220912
  3. IPILIMUMAB [Suspect]
     Active Substance: IPILIMUMAB
     Indication: Colorectal cancer metastatic
     Dosage: 71.9 MG
     Route: 042
     Dates: start: 20220601, end: 20220912
  4. LOPERAMIDE [Concomitant]
     Active Substance: LOPERAMIDE
     Indication: Product used for unknown indication
     Dosage: 2 MG
     Route: 048
     Dates: start: 20220816
  5. MAGNESIUM SULFATE [Concomitant]
     Active Substance: MAGNESIUM SULFATE
     Indication: Product used for unknown indication
     Dosage: 1 G
     Route: 042
     Dates: start: 20220912, end: 20220912
  6. MAGNESIUM SULFATE [Concomitant]
     Active Substance: MAGNESIUM SULFATE
     Dosage: 1 G
     Route: 042
     Dates: start: 20220921
  7. ALEVE [Concomitant]
     Active Substance: NAPROXEN SODIUM
     Indication: Product used for unknown indication
     Dosage: 220 MG
     Route: 048
     Dates: start: 2017
  8. CETIRIZINE [Concomitant]
     Active Substance: CETIRIZINE HYDROCHLORIDE
     Indication: Product used for unknown indication
     Dosage: 10 MG
     Route: 048
     Dates: start: 20220921
  9. VITAMINS [Concomitant]
     Active Substance: VITAMINS
     Indication: Product used for unknown indication
     Dosage: 1 DOSAGE FORM
     Route: 065
     Dates: start: 1972
  10. CYANOCOBALAMIN [Concomitant]
     Active Substance: CYANOCOBALAMIN
     Indication: Product used for unknown indication
     Dosage: UNK
     Route: 065
     Dates: start: 20220912, end: 20220912
  11. CLINDAMYCIN [Concomitant]
     Active Substance: CLINDAMYCIN
     Indication: Product used for unknown indication
     Dosage: 300 MG
     Route: 048
     Dates: start: 20220714
  12. APIXABAN [Concomitant]
     Active Substance: APIXABAN
     Indication: Product used for unknown indication
     Dosage: 5 MG
     Route: 048
     Dates: start: 20211103, end: 20220913
  13. HYDROCORTISONE [Concomitant]
     Active Substance: HYDROCORTISONE
     Indication: Rash
     Dosage: 1 DOSAGE FORM
     Route: 061
     Dates: start: 20220830
  14. SODIUM CHLORIDE [Concomitant]
     Active Substance: SODIUM CHLORIDE
     Indication: Product used for unknown indication
     Dosage: (0.9 %) 1 DOSAGE FORM
     Route: 065
     Dates: start: 20220912, end: 20220912
  15. SODIUM CHLORIDE [Concomitant]
     Active Substance: SODIUM CHLORIDE
     Dosage: (0.9 %) 1 DOSAGE FORM
     Route: 042
     Dates: start: 20220920, end: 20220920
  16. TRAMADOL [Concomitant]
     Active Substance: TRAMADOL
     Indication: Product used for unknown indication
     Dosage: 50 MG
     Route: 048
     Dates: start: 2019
  17. ZYRTEC [Concomitant]
     Active Substance: CETIRIZINE HYDROCHLORIDE
     Indication: Product used for unknown indication
     Dosage: 10 MG
     Route: 048
     Dates: start: 2014
  18. AMLODIPINE [Concomitant]
     Active Substance: AMLODIPINE BESYLATE
     Indication: Product used for unknown indication
     Dosage: 10 MG
     Route: 048
     Dates: start: 2012
  19. MARINOL [Concomitant]
     Active Substance: DRONABINOL
     Indication: Product used for unknown indication
     Dosage: 2.5 MG
     Route: 048
     Dates: start: 2021
  20. LANTUS [Concomitant]
     Active Substance: INSULIN GLARGINE
     Indication: Product used for unknown indication
     Dosage: UNK
     Route: 058
     Dates: start: 2017
  21. NOVOLOG [Concomitant]
     Active Substance: INSULIN ASPART
     Indication: Product used for unknown indication
     Dosage: UNK
     Route: 058
     Dates: start: 2017
  22. ENOXAPARIN [Concomitant]
     Active Substance: ENOXAPARIN
     Indication: Product used for unknown indication
     Dosage: 80 MG
     Route: 058
     Dates: start: 20220913
  23. AQUAPHOR [Concomitant]
     Active Substance: PETROLATUM
     Indication: Product used for unknown indication
     Dosage: 1 DOSAGE FORM
     Route: 061
     Dates: start: 20220921
  24. ESCITALOPRAM [Concomitant]
     Active Substance: ESCITALOPRAM OXALATE
     Indication: Product used for unknown indication
     Dosage: 20 MG
     Route: 048
     Dates: start: 2017
  25. BENADRYL [Concomitant]
     Active Substance: DIPHENHYDRAMINE HYDROCHLORIDE
     Indication: Product used for unknown indication
     Dosage: 25 MG
     Route: 065
     Dates: start: 20220921
  26. CEPHALEXIN [Concomitant]
     Active Substance: CEPHALEXIN
     Indication: Product used for unknown indication
     Dosage: 600 MG
     Route: 048
     Dates: start: 20220921
  27. TRIAMCINOLONE [Concomitant]
     Active Substance: TRIAMCINOLONE
     Indication: Product used for unknown indication
     Dosage: UNK
     Route: 065
     Dates: start: 20220921
  28. CEFTRIAXONE [Concomitant]
     Active Substance: CEFTRIAXONE
     Indication: Product used for unknown indication
     Dosage: 500 MG
     Route: 042
     Dates: start: 20220919, end: 20220919

REACTIONS (1)
  - Drug eruption [Recovered/Resolved]

NARRATIVE: CASE EVENT DATE: 20220921
